FAERS Safety Report 9385836 (Version 1)
Quarter: 2013Q3

REPORT INFORMATION
  Report Type: Spontaneous
  Country: IE (occurrence: IE)
  Receive Date: 20130705
  Receipt Date: 20130705
  Transmission Date: 20140515
  Serious: Yes (Other)
  Sender: FDA-Public Use
  Company Number: IE-B.I. PHARMACEUTICALS,INC./RIDGEFIELD-2013-UK-01339UK

PATIENT
  Sex: Male

DRUGS (2)
  1. TRAJENTA [Suspect]
     Indication: TYPE 2 DIABETES MELLITUS
  2. AMLODIPINE [Concomitant]

REACTIONS (1)
  - Lactic acidosis [Not Recovered/Not Resolved]
